FAERS Safety Report 15866135 (Version 1)
Quarter: 2019Q1

REPORT INFORMATION
  Report Type: Spontaneous
  Country: US (occurrence: US)
  Receive Date: 20190125
  Receipt Date: 20190125
  Transmission Date: 20190417
  Serious: Yes (Other)
  Sender: FDA-Public Use
  Company Number: US-CIPLA LTD.-2019US00411

PATIENT

DRUGS (2)
  1. SINGULAIR [Concomitant]
     Active Substance: MONTELUKAST SODIUM
     Indication: NASAL POLYPS
     Dosage: UNK
     Route: 065
     Dates: end: 20190114
  2. BUDESONIDE. [Suspect]
     Active Substance: BUDESONIDE
     Indication: NASAL POLYPS
     Dosage: UNK, QD, IN THE EVENING
     Route: 045
     Dates: end: 20190114

REACTIONS (3)
  - Wrong technique in product usage process [Unknown]
  - Platelet count decreased [Not Recovered/Not Resolved]
  - Product use in unapproved indication [Unknown]

NARRATIVE: CASE EVENT DATE: 201812
